FAERS Safety Report 7830124-8 (Version None)
Quarter: 2011Q4

REPORT INFORMATION
  Report Type: 
  Country: None (occurrence: None)
  Receive Date: 20111021
  Receipt Date: 20111019
  Transmission Date: 20120403
  Serious: Yes (Disabling, Other)
  Sender: FDA-Public Use
  Company Number: US-BRACCO-002051

PATIENT
  Sex: Male
  Weight: 115.65 kg

DRUGS (34)
  1. OMNISCAN [Suspect]
     Indication: NUCLEAR MAGNETIC RESONANCE IMAGING BRAIN
     Dates: start: 20031111, end: 20031111
  2. MAGNEVIST [Suspect]
     Indication: ANGIOGRAM
     Dates: start: 20040420, end: 20040420
  3. PROTONIX [Concomitant]
  4. TRICOR [Concomitant]
  5. EXENATIDE [Concomitant]
  6. INSULIN GLARGINE [Concomitant]
  7. AGGRENOX [Concomitant]
  8. PLAVIX [Concomitant]
  9. HYDROCHLOROTHIAZIDE [Concomitant]
  10. MAGNEVIST [Suspect]
     Indication: NUCLEAR MAGNETIC RESONANCE IMAGING ABDOMINAL
     Dates: start: 20060510, end: 20060510
  11. BIAXIN [Concomitant]
  12. ALPRAZOLAM [Concomitant]
  13. CONTRAST MEDIA [Suspect]
     Indication: NUCLEAR MAGNETIC RESONANCE IMAGING BRAIN
     Dates: start: 20031105, end: 20031105
  14. SYNTHROID [Concomitant]
  15. AVANDIA [Concomitant]
  16. PROZAC [Concomitant]
  17. LIPITOR [Concomitant]
  18. FUROSEMIDE [Concomitant]
  19. TRAMADOL HCL [Concomitant]
  20. SINGULAIR [Concomitant]
  21. CELEBREX [Concomitant]
  22. MULTIHANCE [Suspect]
     Indication: NUCLEAR MAGNETIC RESONANCE IMAGING
     Dates: start: 20070822, end: 20070822
  23. MAGNEVIST [Suspect]
     Indication: NUCLEAR MAGNETIC RESONANCE IMAGING
     Dates: start: 20040420, end: 20040420
  24. ASPIRIN [Concomitant]
  25. ZOCOR [Concomitant]
  26. AMBIEN [Concomitant]
  27. ADVAIR DISKUS 100/50 [Concomitant]
  28. PREVACID [Concomitant]
  29. PREDNISONE [Concomitant]
  30. ZETIA [Concomitant]
  31. ACTOS [Concomitant]
  32. CYCLOBENZAPRINE [Concomitant]
  33. AMARYL [Concomitant]
  34. DIOVAN [Concomitant]

REACTIONS (2)
  - NEPHROGENIC SYSTEMIC FIBROSIS [None]
  - DEPRESSION [None]
